FAERS Safety Report 5562679-0 (Version None)
Quarter: 2007Q4

REPORT INFORMATION
  Report Type: 
  Country: None (occurrence: None)
  Receive Date: 20071217
  Receipt Date: 20071213
  Transmission Date: 20080405
  Serious: Yes (Hospitalization, Other)
  Sender: FDA-Public Use
  Company Number: DE-BRISTOL-MYERS SQUIBB COMPANY-14014674

PATIENT
  Age: 69 Year
  Sex: Female
  Weight: 77 kg

DRUGS (4)
  1. TAXOL [Suspect]
     Indication: BREAST CANCER METASTATIC
     Route: 042
     Dates: start: 20070926
  2. AVASTIN [Suspect]
     Indication: BREAST CANCER METASTATIC
     Route: 042
     Dates: start: 20070822
  3. HEPARIN [Suspect]
  4. ZOMETA [Concomitant]
     Indication: BREAST CANCER METASTATIC
     Route: 042
     Dates: start: 20021101

REACTIONS (3)
  - ACTIVATED PARTIAL THROMBOPLASTIN TIME PROLONGED [None]
  - DEEP VEIN THROMBOSIS [None]
  - EPISTAXIS [None]
